FAERS Safety Report 15736093 (Version 2)
Quarter: 2018Q4

REPORT INFORMATION
  Report Type: Spontaneous
  Country: FR (occurrence: FR)
  Receive Date: 20181218
  Receipt Date: 20181227
  Transmission Date: 20190205
  Serious: Yes (Hospitalization, Other)
  Sender: FDA-Public Use
  Company Number: FR-GILEAD-2018-0380649

PATIENT
  Age: 58 Year
  Sex: Male

DRUGS (4)
  1. ODEFSEY [Suspect]
     Active Substance: EMTRICITABINE\RILPIVIRINE HYDROCHLORIDE\TENOFOVIR ALAFENAMIDE FUMARATE
     Indication: PRODUCT USED FOR UNKNOWN INDICATION
     Dosage: UNK
     Route: 065
     Dates: start: 201811
  2. TACROLIMUS. [Concomitant]
     Active Substance: TACROLIMUS
  3. GENVOYA [Concomitant]
     Active Substance: COBICISTAT\ELVITEGRAVIR\EMTRICITABINE\TENOFOVIR ALAFENAMIDE FUMARATE
  4. XATRAL [ALFUZOSIN HYDROCHLORIDE] [Concomitant]
     Active Substance: ALFUZOSIN

REACTIONS (1)
  - Prostatic operation [Unknown]

NARRATIVE: CASE EVENT DATE: 201812
